FAERS Safety Report 11310882 (Version 3)
Quarter: 2017Q1

REPORT INFORMATION
  Report Type: Spontaneous
  Country: US (occurrence: US)
  Receive Date: 20150726
  Receipt Date: 20170127
  Transmission Date: 20170428
  Serious: Yes (Congenital Anomaly, Other)
  Sender: FDA-Public Use
  Company Number: US-APOTEX-2015AP008709

PATIENT
  Age: 2 Year
  Sex: Female
  Weight: 22 kg

DRUGS (1)
  1. PAXIL [Suspect]
     Active Substance: PAROXETINE HYDROCHLORIDE
     Indication: DEPRESSION
     Dosage: UNK
     Route: 064
     Dates: start: 199501, end: 199509

REACTIONS (2)
  - Foetal exposure during pregnancy [Unknown]
  - Transposition of the great vessels [Unknown]
